FAERS Safety Report 6844429-0 (Version None)
Quarter: 2010Q3

REPORT INFORMATION
  Report Type: 
  Country: None (occurrence: None)
  Receive Date: 20100713
  Receipt Date: 20100629
  Transmission Date: 20110219
  Serious: Yes (Hospitalization)
  Sender: FDA-Public Use
  Company Number: 014661

PATIENT
  Sex: Male
  Weight: 89.3 kg

DRUGS (2)
  1. CIMZIA [Suspect]
     Indication: CROHN'S DISEASE
     Dosage: (400 MG 1X/MONTH SUBCUTANEOUS)
     Route: 058
     Dates: start: 20100212, end: 20100412
  2. ASACOL [Concomitant]

REACTIONS (6)
  - ANAEMIA [None]
  - CARDIAC FAILURE [None]
  - DEEP VEIN THROMBOSIS [None]
  - PULMONARY EMBOLISM [None]
  - RED BLOOD CELL COUNT INCREASED [None]
  - RENAL EMBOLISM [None]
